FAERS Safety Report 14406576 (Version 1)
Quarter: 2018Q1

REPORT INFORMATION
  Report Type: Spontaneous
  Country: US (occurrence: US)
  Receive Date: 20180116
  Receipt Date: 20180116
  Transmission Date: 20180509
  Serious: No
  Sender: FDA-Public Use
  Company Number: None

PATIENT
  Age: 56 Year
  Sex: Female

DRUGS (1)
  1. CAPECITABINE 500 MG TABLETS [Suspect]
     Active Substance: CAPECITABINE
     Indication: COLON CANCER
     Dosage: 2GRAMS BID X 2W PO?6TH CYCLE
     Route: 048
     Dates: start: 20180101

REACTIONS (3)
  - Swelling [None]
  - Rash [None]
  - Peripheral swelling [None]

NARRATIVE: CASE EVENT DATE: 20180103
